FAERS Safety Report 8876744 (Version 1)
Quarter: 2012Q4

REPORT INFORMATION
  Report Type: 
  Country: US (occurrence: US)
  Receive Date: 20121023
  Receipt Date: 20121023
  Transmission Date: 20130627
  Serious: No
  Sender: FDA-Public Use
  Company Number: US-AMGEN-USASP2012024860

PATIENT
  Age: 45 Year
  Sex: Male
  Weight: 77 kg

DRUGS (6)
  1. ENBREL [Suspect]
     Indication: PSORIASIS
     Dosage: 50 mg, qwk
  2. OMEGA 3                            /01334101/ [Concomitant]
     Dosage: 1000 mg, UNK
  3. TACLONEX [Concomitant]
  4. LISINOPRIL [Concomitant]
     Dosage: 5 mg, UNK
  5. LOVASTATIN [Concomitant]
     Dosage: 10 mg, UNK
  6. MULTIVITAMIN                       /00097801/ [Concomitant]

REACTIONS (6)
  - Liver function test abnormal [Recovered/Resolved]
  - Blood glucose increased [Recovered/Resolved]
  - Blood cholesterol increased [Recovered/Resolved]
  - Blood pressure increased [Recovered/Resolved]
  - Visual impairment [Recovered/Resolved]
  - Influenza [Unknown]
